FAERS Safety Report 14751352 (Version 1)
Quarter: 2018Q2

REPORT INFORMATION
  Report Type: Spontaneous
  Country: IL (occurrence: IL)
  Receive Date: 20180412
  Receipt Date: 20180412
  Transmission Date: 20180711
  Serious: Yes (Other)
  Sender: FDA-Public Use
  Company Number: IL-ROCHE-2062899

PATIENT
  Sex: Female

DRUGS (6)
  1. AVASTIN [Suspect]
     Active Substance: BEVACIZUMAB
     Indication: OVARIAN CANCER METASTATIC
     Route: 042
     Dates: start: 20151007
  2. GEMZAR [Concomitant]
     Active Substance: GEMCITABINE HYDROCHLORIDE
     Route: 065
     Dates: start: 20130311, end: 20130714
  3. TAXOL [Suspect]
     Active Substance: PACLITAXEL
     Indication: OVARIAN CANCER METASTATIC
     Route: 065
     Dates: start: 20151007
  4. CISPLATIN. [Concomitant]
     Active Substance: CISPLATIN
     Route: 065
     Dates: start: 20130311, end: 20130714
  5. DOXIL (ISRAEL) [Concomitant]
     Route: 065
  6. CARBOPLATIN. [Concomitant]
     Active Substance: CARBOPLATIN
     Route: 065
     Dates: start: 201203, end: 20120808

REACTIONS (7)
  - Oedema peripheral [Unknown]
  - Alopecia [Unknown]
  - Dyspnoea [Unknown]
  - Pruritus [Unknown]
  - Paraneoplastic nephrotic syndrome [Unknown]
  - Epistaxis [Unknown]
  - Asthenia [Unknown]
